FAERS Safety Report 13361275 (Version 1)
Quarter: 2017Q1

REPORT INFORMATION
  Report Type: Report from Study
  Country: None (occurrence: CA)
  Receive Date: 20170322
  Receipt Date: 20170322
  Transmission Date: 20170429
  Serious: Yes (Other)
  Sender: FDA-Public Use
  Company Number: CA-ABBVIE-17P-028-1905117-00

PATIENT
  Age: 53 Year
  Sex: Male

DRUGS (5)
  1. HUMIRA [Suspect]
     Active Substance: ADALIMUMAB
     Indication: PSORIASIS
     Route: 058
     Dates: start: 20120524, end: 201612
  2. CIPROFLOXACIN. [Concomitant]
     Active Substance: CIPROFLOXACIN
     Indication: BIOPSY
  3. XYLOCAINE [Concomitant]
     Active Substance: LIDOCAINE HYDROCHLORIDE
     Indication: BIOPSY
  4. BETAMETHASONE. [Concomitant]
     Active Substance: BETAMETHASONE
     Indication: PRODUCT USED FOR UNKNOWN INDICATION
     Dosage: BETHAMETASONE 0.1%?COAL TAR 10%?SALICYLIC ACID 8%
  5. TIAZAC XC [Concomitant]
     Active Substance: DILTIAZEM HYDROCHLORIDE
     Indication: PRODUCT USED FOR UNKNOWN INDICATION

REACTIONS (6)
  - Hepatic steatosis [Unknown]
  - Hiatus hernia [Unknown]
  - Post procedural haemorrhage [Recovered/Resolved]
  - Prostate cancer [Recovering/Resolving]
  - Gastrointestinal tract adenoma [Unknown]
  - Glycosuria [Unknown]

NARRATIVE: CASE EVENT DATE: 2014
